FAERS Safety Report 10723866 (Version 1)
Quarter: 2015Q1

REPORT INFORMATION
  Report Type: Spontaneous
  Country: US (occurrence: US)
  Receive Date: 20150120
  Receipt Date: 20150120
  Transmission Date: 20150721
  Serious: No
  Sender: FDA-Public Use
  Company Number: US-TEVA-535526USA

PATIENT
  Sex: Female

DRUGS (2)
  1. PLAN B ONE-STEP [Suspect]
     Active Substance: LEVONORGESTREL
     Indication: WEIGHT DECREASED
     Dosage: 1.5 MILLIGRAM DAILY;
     Route: 048
     Dates: start: 20150109, end: 20150109
  2. HYDROCUT [Concomitant]
     Indication: WEIGHT DECREASED

REACTIONS (1)
  - Menstruation irregular [Unknown]

NARRATIVE: CASE EVENT DATE: 20150114
